FAERS Safety Report 14240324 (Version 1)
Quarter: 2017Q4

REPORT INFORMATION
  Report Type: Spontaneous
  Country: US (occurrence: US)
  Receive Date: 20171130
  Receipt Date: 20171130
  Transmission Date: 20180321
  Serious: No
  Sender: FDA-Public Use
  Company Number: US-ELI_LILLY_AND_COMPANY-US201711009822

PATIENT
  Age: 62 Year
  Sex: Male

DRUGS (8)
  1. GLYBURIDE. [Concomitant]
     Active Substance: GLYBURIDE
     Dosage: 5 MG, UNK
  2. LISINOPRIL. [Concomitant]
     Active Substance: LISINOPRIL
     Dosage: 10 MG, UNK
  3. INVOKANA [Concomitant]
     Active Substance: CANAGLIFLOZIN
     Dosage: 300 MG, UNK
  4. METFORMIN [Concomitant]
     Active Substance: METFORMIN HYDROCHLORIDE
     Dosage: 500 MG, UNK
  5. SYNOVACIN [Concomitant]
  6. CARDIA [Concomitant]
     Active Substance: AJMALINE
     Dosage: 120 MG, UNK
  7. TRULICITY [Suspect]
     Active Substance: DULAGLUTIDE
     Indication: PRODUCT USED FOR UNKNOWN INDICATION
     Dosage: 0.75 MG, WEEKLY (1/W)
     Route: 058
     Dates: start: 20170208
  8. HYDROCHLOROTHIAZIDE. [Concomitant]
     Active Substance: HYDROCHLOROTHIAZIDE
     Dosage: 25 MG, UNK

REACTIONS (1)
  - Gastrointestinal disorder [Unknown]
